FAERS Safety Report 9425640 (Version 2)
Quarter: 2014Q1

REPORT INFORMATION
  Report Type: Spontaneous
  Country: US (occurrence: US)
  Receive Date: 20130729
  Receipt Date: 20140102
  Transmission Date: 20141002
  Serious: Yes (Death, Hospitalization)
  Sender: FDA-Public Use
  Company Number: US-B.I. PHARMACEUTICALS,INC./RIDGEFIELD-2013-BI-21986BP

PATIENT
  Sex: Female
  Weight: 45.36 kg

DRUGS (13)
  1. PRADAXA [Suspect]
     Dosage: 300 MG
     Route: 048
     Dates: start: 20111211, end: 20120103
  2. ADVAIR [Concomitant]
     Route: 055
  3. ALEVE [Concomitant]
     Route: 048
  4. ASA [Concomitant]
     Dosage: 81 MG
     Route: 048
  5. DIGOXIN [Concomitant]
     Dosage: 0.125 MG
     Route: 048
  6. DOCQLACE [Concomitant]
     Dosage: 200 MG
     Route: 048
  7. ENALAPRIL [Concomitant]
     Dosage: 5 MG
     Route: 048
  8. LASIX [Concomitant]
     Dosage: 40 MG
     Route: 048
  9. MAG OXIDE [Concomitant]
     Route: 048
  10. METOPROLOL [Concomitant]
     Dosage: 12.5 MG
     Route: 048
  11. OMEPRAZOLE [Concomitant]
     Dosage: 20 MG
     Route: 048
  12. RISPERIDONE [Concomitant]
     Dosage: 0.25 MG
     Route: 048
  13. VENTOLIN [Concomitant]

REACTIONS (2)
  - Upper gastrointestinal haemorrhage [Fatal]
  - Anaemia [Unknown]
